FAERS Safety Report 4531350-6 (Version None)
Quarter: 2004Q4

REPORT INFORMATION
  Report Type: 
  Country: None (occurrence: None)
  Receive Date: 20041206
  Receipt Date: 20040915
  Transmission Date: 20050328
  Serious: Yes (Other)
  Sender: FDA-Public Use
  Company Number: USA040978353

PATIENT
  Age: 39 Year
  Sex: Male
  Weight: 82 kg

DRUGS (4)
  1. CYMBALTA [Suspect]
     Dosage: 5 DSG FORM
     Dates: start: 20040915, end: 20040915
  2. ZYPREXA [Suspect]
     Dosage: 5 DSG FORM
  3. DEPAKOTE [Concomitant]
  4. ASPIRIN [Concomitant]

REACTIONS (2)
  - INTENTIONAL OVERDOSE [None]
  - SUICIDE ATTEMPT [None]
